FAERS Safety Report 16178721 (Version 1)
Quarter: 2019Q2

REPORT INFORMATION
  Report Type: Spontaneous
  Country: DE (occurrence: DE)
  Receive Date: 20190410
  Receipt Date: 20190410
  Transmission Date: 20190711
  Serious: No
  Sender: FDA-Public Use
  Company Number: DE-ALKEM LABORATORIES LIMITED-DE-ALKEM-2018-02796

PATIENT
  Sex: Female

DRUGS (4)
  1. ELEVIT [Concomitant]
     Active Substance: FOLIC ACID\IRON\MINERALS\VITAMINS
     Indication: PROPHYLAXIS OF NEURAL TUBE DEFECT
     Dosage: UNK
     Route: 048
     Dates: start: 20160612, end: 20170321
  2. QUETIAPINE FUMARATE. [Suspect]
     Active Substance: QUETIAPINE FUMARATE
     Dosage: 150 MG, QD
     Route: 048
     Dates: start: 20160612, end: 20170321
  3. QUETIAPINE FUMARATE. [Suspect]
     Active Substance: QUETIAPINE FUMARATE
     Indication: DEPRESSION
     Dosage: 300 MG, QD
     Route: 048
     Dates: start: 2009
  4. L-THYROXIN [Concomitant]
     Active Substance: LEVOTHYROXINE SODIUM
     Indication: HYPOTHYROIDISM
     Dosage: 75 ?G, OD
     Route: 065
     Dates: start: 20160915, end: 20170321

REACTIONS (1)
  - Exposure during pregnancy [Unknown]
